FAERS Safety Report 21091911 (Version 3)
Quarter: 2022Q3

REPORT INFORMATION
  Report Type: Report from Study
  Country: PT (occurrence: PT)
  Receive Date: 20220717
  Receipt Date: 20220831
  Transmission Date: 20221027
  Serious: Yes (Disabling)
  Sender: FDA-Public Use
  Company Number: PT-ABBVIE-22K-130-4440998-00

PATIENT
  Age: 76 Year
  Sex: Female

DRUGS (20)
  1. CARBIDOPA\LEVODOPA [Suspect]
     Active Substance: CARBIDOPA\LEVODOPA
     Indication: Parkinson^s disease
     Dosage: 20 MG 5 MG, MORN 20C MAINT:3CC/H EXTRA 1CC
     Route: 050
     Dates: start: 20220510, end: 2022
  2. CARBIDOPA\LEVODOPA [Suspect]
     Active Substance: CARBIDOPA\LEVODOPA
     Dosage: 20 MG 5 MG, MORN:15.3C MAINT 11CC H EXTRA 3CC
     Route: 050
     Dates: start: 2022, end: 20220617
  3. CARBIDOPA\LEVODOPA [Suspect]
     Active Substance: CARBIDOPA\LEVODOPA
     Dosage: 20 MG 5 MG, MORN:15.3CC MAINT:11.5CC/H EXTRA:4CC
     Route: 050
     Dates: start: 20220617, end: 20220620
  4. CARBIDOPA\LEVODOPA [Suspect]
     Active Substance: CARBIDOPA\LEVODOPA
     Dosage: 20 MG 5 MG MORN:18.5CC;MAINT:11.8CC/H EXTRA 4CC
     Route: 050
     Dates: start: 20220620, end: 2022
  5. CARBIDOPA\LEVODOPA [Suspect]
     Active Substance: CARBIDOPA\LEVODOPA
     Dosage: 20 MG AND 5 MG MORN:18.5CC MAINT:11.8CC/H EXTRA 4CC
     Route: 050
     Dates: start: 2022
  6. BENSERAZIDE HYDROCHLORIDE\LEVODOPA [Concomitant]
     Active Substance: BENSERAZIDE HYDROCHLORIDE\LEVODOPA
     Indication: Parkinson^s disease
     Dosage: AT BEDTIME
     Dates: start: 20220617, end: 20220712
  7. BENSERAZIDE HYDROCHLORIDE\LEVODOPA [Concomitant]
     Active Substance: BENSERAZIDE HYDROCHLORIDE\LEVODOPA
     Dosage: AT BEDTIME
     Dates: start: 20220712
  8. ALPRAZOLAM [Concomitant]
     Active Substance: ALPRAZOLAM
     Indication: Product used for unknown indication
     Dosage: AT 11AM AND 4PM?DRUG STARTED BEFORE DUODOPA
     Route: 048
  9. BISOPROLOL [Concomitant]
     Active Substance: BISOPROLOL
     Indication: Product used for unknown indication
     Dosage: AT LUNCH?BEFORE DUODOPA
     Route: 048
  10. FOLIC ACID [Concomitant]
     Active Substance: FOLIC ACID
     Indication: Product used for unknown indication
     Dosage: AT LUNCH?STARTED BEFORE DUODOPA
     Route: 048
  11. MIRTAZAPINE [Concomitant]
     Active Substance: MIRTAZAPINE
     Indication: Product used for unknown indication
     Dosage: AT BEDTIME?STARTED BEFORE DUODOPA
     Route: 048
  12. LORAZEPAM [Concomitant]
     Active Substance: LORAZEPAM
     Indication: Product used for unknown indication
     Dosage: AT BEDTIME?STARTED BEFORE DUODOPA
     Route: 048
  13. QUETIAPINE [Concomitant]
     Active Substance: QUETIAPINE
     Indication: Product used for unknown indication
     Dosage: SEROQUEL SR 50 (QUETIAPINE)?AT DINNER?STARTED BEFORE DUODOPA
     Route: 048
  14. ATORVASTATIN [Concomitant]
     Active Substance: ATORVASTATIN
     Indication: Product used for unknown indication
     Dosage: AT DINNER?STARTED BEFORE DUODOPA
     Route: 048
  15. PANTOPRAZOLE [Concomitant]
     Active Substance: PANTOPRAZOLE
     Indication: Product used for unknown indication
     Dosage: AT FASTING?STARTED BEFORE DUODOPA
     Route: 048
  16. CHOLECALCIFEROL [Concomitant]
     Active Substance: CHOLECALCIFEROL
     Indication: Product used for unknown indication
     Dosage: VIGANTOL (CHOLECALCIFEROL) ?AT BREAKFAST?STARTED BEFORE DUODOPA
     Route: 048
  17. FUROSEMIDE [Concomitant]
     Active Substance: FUROSEMIDE
     Indication: Product used for unknown indication
     Dosage: AT BREAKFAST?STARTED BEFORE DUODOPA
     Route: 048
  18. DOMPERIDONE [Concomitant]
     Active Substance: DOMPERIDONE
     Indication: Product used for unknown indication
     Dosage: AT THREE MEALS?STARTED BEFORE DUODOPA
     Route: 048
  19. IPRATROPIUM BROMIDE [Concomitant]
     Active Substance: IPRATROPIUM BROMIDE
     Indication: Product used for unknown indication
     Dosage: STARTED BEFORE DUODOPA
     Route: 048
     Dates: end: 202206
  20. ACETYLCYSTEINE [Concomitant]
     Active Substance: ACETYLCYSTEINE
     Indication: Product used for unknown indication
     Route: 048
     Dates: start: 20220617, end: 20220619

REACTIONS (8)
  - Gait disturbance [Not Recovered/Not Resolved]
  - Speech disorder [Recovering/Resolving]
  - Mobility decreased [Recovering/Resolving]
  - Dysstasia [Recovered/Resolved]
  - Therapeutic product effect delayed [Recovering/Resolving]
  - Bradykinesia [Not Recovered/Not Resolved]
  - Eschar [Recovering/Resolving]
  - On and off phenomenon [Not Recovered/Not Resolved]

NARRATIVE: CASE EVENT DATE: 20220601
